FAERS Safety Report 19093900 (Version 1)
Quarter: 2021Q2

REPORT INFORMATION
  Report Type: Spontaneous
  Country: CA (occurrence: CA)
  Receive Date: 20210405
  Receipt Date: 20210405
  Transmission Date: 20210717
  Serious: Yes (Other)
  Sender: FDA-Public Use
  Company Number: CA-TEVA-2021-CA-1897297

PATIENT
  Age: 73 Year
  Sex: Female

DRUGS (4)
  1. OXALIPLATIN INJECTION SINGLE USE VIALS [Suspect]
     Active Substance: OXALIPLATIN
     Indication: NEOPLASM MALIGNANT
     Route: 042
  2. IRINOTECAN HYDROCHLORIDE. [Concomitant]
     Active Substance: IRINOTECAN HYDROCHLORIDE
  3. FLUOROURACIL. [Concomitant]
     Active Substance: FLUOROURACIL
  4. FOLINIC ACID /00566702/ [Concomitant]
     Active Substance: LEUCOVORIN CALCIUM

REACTIONS (3)
  - Muscle spasms [Recovered/Resolved]
  - Paraesthesia [Recovered/Resolved]
  - Nausea [Recovered/Resolved]
